FAERS Safety Report 4479413-8 (Version None)
Quarter: 2004Q4

REPORT INFORMATION
  Report Type: 
  Country: None (occurrence: None)
  Receive Date: 20041015
  Receipt Date: 20041006
  Transmission Date: 20050328
  Serious: Yes (Other)
  Sender: FDA-Public Use
  Company Number: 2004237032CA

PATIENT
  Age: 18 Year
  Sex: Female
  Weight: 61.2 kg

DRUGS (1)
  1. DEPO-PROVERA [Suspect]
     Indication: CONTRACEPTION
     Dosage: 150 MG/10 3 WKS, 1ST INJECTION, INTRAMUSCULAR
     Route: 030
     Dates: start: 20040505, end: 20040505

REACTIONS (2)
  - CHEST PAIN [None]
  - DYSPNOEA [None]
